FAERS Safety Report 7979510-6 (Version None)
Quarter: 2011Q4

REPORT INFORMATION
  Report Type: 
  Country: None (occurrence: None)
  Receive Date: 20111214
  Receipt Date: 20111202
  Transmission Date: 20120403
  Serious: Yes (Hospitalization, Other)
  Sender: FDA-Public Use
  Company Number: PHHY2011AU74420

PATIENT
  Sex: Female

DRUGS (2)
  1. EXELON [Suspect]
     Dosage: 1 DF DAILY
     Route: 062
     Dates: start: 20110819
  2. EXELON [Suspect]
     Indication: DEMENTIA ALZHEIMER'S TYPE
     Dosage: 1 DF, DAILY
     Route: 062
     Dates: end: 20110814

REACTIONS (5)
  - INFECTION [None]
  - CEREBRAL HAEMORRHAGE [None]
  - TACHYCARDIA [None]
  - CELLULITIS [None]
  - URINARY TRACT INFECTION [None]
